FAERS Safety Report 9175511 (Version 2)
Quarter: 2013Q2

REPORT INFORMATION
  Report Type: Spontaneous
  Country: CN (occurrence: CN)
  Receive Date: 20130320
  Receipt Date: 20130403
  Transmission Date: 20140414
  Serious: Yes (Other)
  Sender: FDA-Public Use
  Company Number: CN-ROCHE-1203160

PATIENT
  Age: 40 Year
  Sex: Female

DRUGS (2)
  1. PEGASYS [Suspect]
     Indication: HEPATITIS C
     Route: 058
     Dates: start: 2010
  2. PEGASYS [Suspect]
     Route: 058
     Dates: start: 2011

REACTIONS (2)
  - Hepatitis C [Recovered/Resolved]
  - Full blood count decreased [Recovered/Resolved]
